FAERS Safety Report 7319062-7 (Version None)
Quarter: 2011Q1

REPORT INFORMATION
  Report Type: 
  Country: None (occurrence: None)
  Receive Date: 20110228
  Receipt Date: 20110216
  Transmission Date: 20110831
  Serious: Yes (Hospitalization)
  Sender: FDA-Public Use
  Company Number: FR-PFIZER INC-2011040984

PATIENT
  Age: 60 Year
  Sex: Female

DRUGS (1)
  1. ATARAX [Suspect]
     Indication: PREMEDICATION
     Dosage: 100 MG, 100MG/2ML
     Route: 042
     Dates: start: 20101208, end: 20101208

REACTIONS (2)
  - SEDATION [None]
  - BRADYPNOEA [None]
